FAERS Safety Report 11439651 (Version 1)
Quarter: 2015Q3

REPORT INFORMATION
  Report Type: Spontaneous
  Country: US (occurrence: US)
  Receive Date: 20150901
  Receipt Date: 20150901
  Transmission Date: 20151125
  Serious: Yes (Other)
  Sender: FDA-Public Use
  Company Number: US-ROCHE-1061268

PATIENT
  Age: 60 Year
  Sex: Female
  Weight: 86.26 kg

DRUGS (5)
  1. PEGASYS [Suspect]
     Active Substance: PEGINTERFERON ALFA-2A
     Indication: HEPATITIS C
     Route: 058
     Dates: start: 20120413
  2. INCIVEK [Suspect]
     Active Substance: TELAPREVIR
     Indication: HEPATITIS C
     Route: 065
     Dates: start: 20120413, end: 20120706
  3. RIBAVIRIN. [Suspect]
     Active Substance: RIBAVIRIN
     Indication: HEPATITIS C
     Dosage: IN DIVIDED DOSE
     Route: 048
     Dates: start: 20120413
  4. PEGASYS [Suspect]
     Active Substance: PEGINTERFERON ALFA-2A
     Route: 065
  5. RIBAVIRIN. [Suspect]
     Active Substance: RIBAVIRIN
     Dosage: DOSE MODIFIED
     Route: 048

REACTIONS (15)
  - White blood cell count decreased [Unknown]
  - Arthralgia [Unknown]
  - Fatigue [Unknown]
  - Alopecia [Unknown]
  - Injection site erythema [Unknown]
  - Pruritus generalised [Unknown]
  - Rash [Unknown]
  - Influenza like illness [Unknown]
  - Dysgeusia [Unknown]
  - Drug dose omission [Unknown]
  - Weight decreased [Unknown]
  - Abdominal pain [Unknown]
  - Decreased appetite [Unknown]
  - Red blood cell count decreased [Unknown]
  - Diarrhoea [Unknown]

NARRATIVE: CASE EVENT DATE: 20120415
